FAERS Safety Report 8212697-9 (Version None)
Quarter: 2012Q1

REPORT INFORMATION
  Report Type: 
  Country: None (occurrence: None)
  Receive Date: 20120315
  Receipt Date: 20120312
  Transmission Date: 20120608
  Serious: Yes (Other)
  Sender: FDA-Public Use
  Company Number: US-AMGEN-USASP2011008534

PATIENT
  Age: 80 Year
  Sex: Female

DRUGS (1)
  1. PROLIA [Suspect]
     Indication: OSTEOPOROSIS POSTMENOPAUSAL
     Dosage: 60 MG, Q6MO
     Dates: start: 20110210

REACTIONS (6)
  - HYPOAESTHESIA ORAL [None]
  - PARAESTHESIA ORAL [None]
  - GASTROENTERITIS VIRAL [None]
  - ANXIETY [None]
  - PSYCHOSOMATIC DISEASE [None]
  - NAUSEA [None]
